FAERS Safety Report 5475713-3 (Version None)
Quarter: 2007Q4

REPORT INFORMATION
  Report Type: 
  Country: None (occurrence: None)
  Receive Date: 20071001
  Receipt Date: 20071001
  Transmission Date: 20080405
  Serious: No
  Sender: FDA-Public Use
  Company Number: None

PATIENT

DRUGS (1)
  1. LAFAYETTE LIQUID BAROSHERSE   UNKNOWN   UNKNOWN [Suspect]
     Indication: SCAN WITH CONTRAST
     Dosage: INJ

REACTIONS (2)
  - BURNING SENSATION [None]
  - PHARMACEUTICAL PRODUCT COMPLAINT [None]
